FAERS Safety Report 7978115 (Version 3)
Quarter: 2013Q1

REPORT INFORMATION
  Report Type: Report from Study
  Country: CA (occurrence: CA)
  Receive Date: 20110607
  Receipt Date: 20130304
  Transmission Date: 20140127
  Serious: Yes (Other)
  Sender: FDA-Public Use
  Company Number: PHHO2004CA07764

PATIENT
  Sex: Female
  Weight: 59 kg

DRUGS (2)
  1. CLOZARIL [Suspect]
     Dosage: 100 MG, QD
     Route: 048
     Dates: start: 1994
  2. CLOZARIL [Suspect]
     Route: 048
     Dates: start: 20040527

REACTIONS (3)
  - Gestational diabetes [Unknown]
  - Premature delivery [Unknown]
  - Maternal exposure during pregnancy [Unknown]
